FAERS Safety Report 14238536 (Version 1)
Quarter: 2017Q4

REPORT INFORMATION
  Report Type: Spontaneous
  Country: US (occurrence: US)
  Receive Date: 20171130
  Receipt Date: 20171130
  Transmission Date: 20180321
  Serious: No
  Sender: FDA-Public Use
  Company Number: US-ASTRAZENECA-2017SF19421

PATIENT
  Age: 17456 Day
  Sex: Female
  Weight: 64.4 kg

DRUGS (2)
  1. PROTONIX [Concomitant]
     Active Substance: PANTOPRAZOLE SODIUM
     Indication: EXPOSURE TO RADIATION
     Dosage: UNKNOWN
     Route: 048
  2. TAGRISSO [Suspect]
     Active Substance: OSIMERTINIB
     Indication: LUNG CARCINOMA CELL TYPE UNSPECIFIED STAGE IV
     Route: 048
     Dates: start: 201709

REACTIONS (8)
  - Chest pain [Recovering/Resolving]
  - Eructation [Not Recovered/Not Resolved]
  - Peptic ulcer [Recovered/Resolved]
  - Gastrooesophageal reflux disease [Recovering/Resolving]
  - Throat tightness [Not Recovered/Not Resolved]
  - Gastrointestinal inflammation [Recovering/Resolving]
  - Inflammation [Recovering/Resolving]
  - Dysphagia [Not Recovered/Not Resolved]

NARRATIVE: CASE EVENT DATE: 20171013
